FAERS Safety Report 8559583-2 (Version None)
Quarter: 2012Q3

REPORT INFORMATION
  Report Type: 
  Country: None (occurrence: None)
  Receive Date: 20120802
  Receipt Date: 20120724
  Transmission Date: 20120928
  Serious: Yes (Hospitalization)
  Sender: FDA-Public Use
  Company Number: JP-SANOFI-AVENTIS-2012SA044139

PATIENT
  Age: 72 Year
  Sex: Male
  Weight: 59.5 kg

DRUGS (12)
  1. PLAVIX [Suspect]
     Indication: LACUNAR INFARCTION
     Route: 048
     Dates: start: 20120515, end: 20120526
  2. DISOPYRAMIDE PHOSPHATE [Suspect]
     Route: 048
     Dates: start: 20120302, end: 20120525
  3. PLAVIX [Suspect]
     Route: 048
     Dates: start: 20110422, end: 20120425
  4. PLETAL [Suspect]
     Indication: LACUNAR INFARCTION
     Route: 048
     Dates: start: 20111228, end: 20120426
  5. PLETAL [Suspect]
     Route: 048
     Dates: start: 20120515, end: 20120525
  6. TENORMIN [Suspect]
     Route: 048
     Dates: start: 20120302, end: 20120525
  7. VERAPAMIL HCL [Suspect]
     Route: 048
     Dates: start: 20120302, end: 20120525
  8. PLAVIX [Suspect]
     Indication: CEREBRAL INFARCTION
     Route: 048
     Dates: start: 20120515, end: 20120526
  9. FLOMAX [Concomitant]
     Indication: CHEST DISCOMFORT
     Route: 048
     Dates: start: 20120509, end: 20120516
  10. EPINASTINE HYDROCHLORIDE [Concomitant]
     Route: 048
  11. CETIRIZINE HCL [Concomitant]
     Route: 048
  12. PLAVIX [Suspect]
     Route: 048
     Dates: start: 20110422, end: 20120425

REACTIONS (4)
  - EOSINOPHILIC PNEUMONIA [None]
  - HYPERHIDROSIS [None]
  - PYREXIA [None]
  - HAEMOPTYSIS [None]
